FAERS Safety Report 18086380 (Version 1)
Quarter: 2020Q3

REPORT INFORMATION
  Report Type: Report from Study
  Country: US (occurrence: US)
  Receive Date: 20200729
  Receipt Date: 20200729
  Transmission Date: 20201103
  Serious: No
  Sender: FDA-Public Use
  Company Number: US-IGSA-BIG0010775

PATIENT
  Sex: Female
  Weight: 108.8 kg

DRUGS (3)
  1. GAMUNEX?C [Suspect]
     Active Substance: HUMAN IMMUNOGLOBULIN G
     Indication: IMMUNODEFICIENCY
     Dosage: 50 GRAM, Q.M.T.
     Route: 042
     Dates: start: 2016
  2. GAMUNEX?C [Suspect]
     Active Substance: HUMAN IMMUNOGLOBULIN G
     Dosage: UNK
     Dates: start: 202007
  3. GAMUNEX?C [Suspect]
     Active Substance: HUMAN IMMUNOGLOBULIN G
     Dosage: UNK
     Dates: start: 202007

REACTIONS (8)
  - Swelling [Recovered/Resolved]
  - Muscular weakness [Recovered/Resolved]
  - Vertigo [Recovered/Resolved]
  - Swelling face [Recovered/Resolved]
  - Fatigue [Recovered/Resolved]
  - Weight increased [Recovered/Resolved]
  - Serum sickness [Recovered/Resolved]
  - Fluid retention [Recovered/Resolved]

NARRATIVE: CASE EVENT DATE: 2016
